FAERS Safety Report 6121920-6 (Version None)
Quarter: 2009Q1

REPORT INFORMATION
  Report Type: 
  Country: None (occurrence: None)
  Receive Date: 20090313
  Receipt Date: 20090302
  Transmission Date: 20090719
  Serious: Yes (Hospitalization)
  Sender: FDA-Public Use
  Company Number: 1000005140

PATIENT
  Age: 56 Year
  Sex: Female
  Weight: 55 kg

DRUGS (9)
  1. MILNACIPRAN (MILNACIPRAN HYDROCHLORIDE) (CAPSULES) [Suspect]
     Indication: DEPRESSION
     Dosage: 150 MG (50 MG,3 IN 1 D),ORAL ; 100 MG (50 MG,2 IN 1 D),ORAL
     Route: 048
     Dates: start: 20090112, end: 20090114
  2. MILNACIPRAN (MILNACIPRAN HYDROCHLORIDE) (CAPSULES) [Suspect]
     Indication: SUICIDE ATTEMPT
     Dosage: 150 MG (50 MG,3 IN 1 D),ORAL ; 100 MG (50 MG,2 IN 1 D),ORAL
     Route: 048
     Dates: start: 20090112, end: 20090114
  3. MILNACIPRAN (MILNACIPRAN HYDROCHLORIDE) (CAPSULES) [Suspect]
     Indication: DEPRESSION
     Dosage: 150 MG (50 MG,3 IN 1 D),ORAL ; 100 MG (50 MG,2 IN 1 D),ORAL
     Route: 048
     Dates: start: 20090115, end: 20090122
  4. MILNACIPRAN (MILNACIPRAN HYDROCHLORIDE) (CAPSULES) [Suspect]
     Indication: SUICIDE ATTEMPT
     Dosage: 150 MG (50 MG,3 IN 1 D),ORAL ; 100 MG (50 MG,2 IN 1 D),ORAL
     Route: 048
     Dates: start: 20090115, end: 20090122
  5. IMOVANE [Concomitant]
  6. ALPRAZOLAM [Concomitant]
  7. PAROXETINE (TABLETS) [Concomitant]
  8. BROMAZEPAM [Concomitant]
  9. ENALAPRIL [Concomitant]

REACTIONS (6)
  - CONJUNCTIVITIS [None]
  - FACE OEDEMA [None]
  - HYPERSENSITIVITY [None]
  - INFLAMMATION [None]
  - LIVER FUNCTION TEST ABNORMAL [None]
  - RASH MACULO-PAPULAR [None]
